FAERS Safety Report 10221965 (Version 1)
Quarter: 2014Q2

REPORT INFORMATION
  Report Type: Spontaneous
  Country: FR (occurrence: FR)
  Receive Date: 20140606
  Receipt Date: 20140606
  Transmission Date: 20141212
  Serious: No
  Sender: FDA-Public Use
  Company Number: FR-BIOMARINAP-FR-2013-102167

PATIENT
  Sex: 0
  Weight: 48.9 kg

DRUGS (1)
  1. NAGLAZYME [Suspect]
     Indication: PRODUCT USED FOR UNKNOWN INDICATION
     Dosage: UNK
     Route: 041

REACTIONS (3)
  - Extravasation [Unknown]
  - Effusion [Unknown]
  - Erythema [Recovered/Resolved]
